FAERS Safety Report 18358310 (Version 1)
Quarter: 2020Q4

REPORT INFORMATION
  Report Type: Report from Study
  Country: None (occurrence: US)
  Receive Date: 20201007
  Receipt Date: 20201007
  Transmission Date: 20210114
  Serious: Yes (Other)
  Sender: FDA-Public Use
  Company Number: US-ABBVIE-20K-163-3384669-00

PATIENT
  Age: 70 Year
  Sex: Male
  Weight: 90 kg

DRUGS (2)
  1. HUMIRA [Suspect]
     Active Substance: ADALIMUMAB
     Route: 058
     Dates: end: 2020
  2. HUMIRA [Suspect]
     Active Substance: ADALIMUMAB
     Indication: PSORIASIS
     Route: 058

REACTIONS (9)
  - Fall [Unknown]
  - Device fastener issue [Unknown]
  - Lumbar vertebral fracture [Not Recovered/Not Resolved]
  - Spinal fusion surgery [Recovering/Resolving]
  - Spinal instability [Recovering/Resolving]
  - Arthralgia [Not Recovered/Not Resolved]
  - Myalgia [Unknown]
  - Dry skin [Not Recovered/Not Resolved]
  - Cartilage atrophy [Unknown]

NARRATIVE: CASE EVENT DATE: 202007
